FAERS Safety Report 5341753-8 (Version None)
Quarter: 2007Q2

REPORT INFORMATION
  Report Type: 
  Country: None (occurrence: None)
  Receive Date: 20070530
  Receipt Date: 20070515
  Transmission Date: 20071010
  Serious: Yes (Hospitalization, Other)
  Sender: FDA-Public Use
  Company Number: 013560

PATIENT
  Age: 42 Year
  Sex: Female

DRUGS (1)
  1. MICRETTE(DESOGESTREL, ETHINYLESTRADIOL) TABLET, 0.15/0.02MG [Suspect]
     Indication: MENSTRUATION IRREGULAR

REACTIONS (9)
  - ACTIVATED PROTEIN C RESISTANCE [None]
  - FACTOR V LEIDEN MUTATION [None]
  - FIBRIN D DIMER INCREASED [None]
  - HEREDITARY ANGIOEDEMA [None]
  - OEDEMA [None]
  - PURPURA FULMINANS [None]
  - RED BLOOD CELL SEDIMENTATION RATE INCREASED [None]
  - SKIN DISCOLOURATION [None]
  - SKIN NECROSIS [None]
